FAERS Safety Report 11796950 (Version 3)
Quarter: 2016Q4

REPORT INFORMATION
  Report Type: Spontaneous
  Country: DK (occurrence: DK)
  Receive Date: 20151203
  Receipt Date: 20161027
  Transmission Date: 20170206
  Serious: Yes (Other)
  Sender: FDA-Public Use
  Company Number: PHHY2015DK157116

PATIENT
  Sex: Female
  Weight: 70 kg

DRUGS (9)
  1. TAXOTERE [Concomitant]
     Active Substance: DOCETAXEL
     Indication: PRODUCT USED FOR UNKNOWN INDICATION
     Route: 065
  2. ZOMETA [Suspect]
     Active Substance: ZOLEDRONIC ACID
     Dosage: UNK (IN 3 WEEKS INTERVAL)
     Route: 065
     Dates: start: 20091117, end: 20100511
  3. BONDRONAT [Suspect]
     Active Substance: IBANDRONIC ACID
     Indication: BREAST CANCER METASTATIC
  4. EPIRUBICIN [Concomitant]
     Active Substance: EPIRUBICIN
     Indication: PRODUCT USED FOR UNKNOWN INDICATION
     Route: 065
  5. ZOMETA [Suspect]
     Active Substance: ZOLEDRONIC ACID
     Indication: METASTASES TO BONE
     Dosage: UNK (IN 3 WEEKS INTERVAL)
     Route: 065
     Dates: start: 20070907, end: 20071214
  6. ZOMETA [Suspect]
     Active Substance: ZOLEDRONIC ACID
     Indication: BREAST CANCER METASTATIC
     Dosage: UNK (IN 4 WEEKS INTERVAL)
     Route: 065
     Dates: start: 20080114, end: 20080404
  7. ZOMETA [Suspect]
     Active Substance: ZOLEDRONIC ACID
     Dosage: UNK (GIVEN AS ONCE PRESCRIPTION)
     Route: 065
     Dates: start: 20100802, end: 20110622
  8. ZOMETA [Suspect]
     Active Substance: ZOLEDRONIC ACID
     Dosage: UNK (GIVEN AS ONCE PRESCRIPTION)
     Route: 065
     Dates: start: 20110622
  9. BONDRONAT [Suspect]
     Active Substance: IBANDRONIC ACID
     Indication: METASTASES TO BONE
     Dosage: UNK
     Route: 065
     Dates: start: 20080506, end: 20090825

REACTIONS (4)
  - Exposed bone in jaw [Unknown]
  - Exostosis of jaw [Unknown]
  - Tooth disorder [Unknown]
  - Osteonecrosis of jaw [Unknown]
